FAERS Safety Report 5060401-8 (Version None)
Quarter: 2006Q3

REPORT INFORMATION
  Report Type: 
  Country: None (occurrence: None)
  Receive Date: 20060725
  Receipt Date: 20060713
  Transmission Date: 20061208
  Serious: Yes (Other)
  Sender: FDA-Public Use
  Company Number: US-JNJFOC-20060504545

PATIENT
  Sex: Female

DRUGS (8)
  1. REMICADE [Suspect]
     Dosage: ^REST OF DOSE^ GIVEN FROM 09-MAY-06
  2. REMICADE [Suspect]
     Indication: CROHN'S DISEASE
  3. ACETAMINOPHEN [Concomitant]
     Indication: PREMEDICATION
  4. CLARITIN [Concomitant]
     Indication: PREMEDICATION
  5. PREDNISONE [Concomitant]
     Indication: PREMEDICATION
  6. SUDAFED 12 HOUR [Concomitant]
     Indication: PREMEDICATION
  7. ASACOL [Concomitant]
     Indication: CROHN'S DISEASE
  8. 6-MP [Concomitant]
     Indication: CROHN'S DISEASE

REACTIONS (8)
  - ANAPHYLACTIC REACTION [None]
  - COUGH [None]
  - ERYTHEMA [None]
  - FLUSHING [None]
  - PARAESTHESIA ORAL [None]
  - RASH [None]
  - SWOLLEN TONGUE [None]
  - THROAT TIGHTNESS [None]
